FAERS Safety Report 8428600-2 (Version None)
Quarter: 2012Q2

REPORT INFORMATION
  Report Type: 
  Country: None (occurrence: None)
  Receive Date: 20120606
  Receipt Date: 20120606
  Transmission Date: 20120825
  Serious: No
  Sender: FDA-Public Use
  Company Number: None

PATIENT

DRUGS (3)
  1. LEXAPRO [Suspect]
     Indication: AFFECTIVE DISORDER
     Dates: start: 20120321, end: 20120501
  2. LEXAPRO [Suspect]
     Indication: ABNORMAL BEHAVIOUR
     Dates: start: 20120321, end: 20120501
  3. ESCITALOPRAM (XANAX) [Concomitant]

REACTIONS (10)
  - BLOOD PRESSURE INCREASED [None]
  - ABNORMAL DREAMS [None]
  - ANXIETY [None]
  - PRODUCT SUBSTITUTION ISSUE [None]
  - ANGER [None]
  - AGITATION [None]
  - PRURITUS GENERALISED [None]
  - HYPERACUSIS [None]
  - INSOMNIA [None]
  - STRESS [None]
